FAERS Safety Report 25499509 (Version 1)
Quarter: 2025Q3

REPORT INFORMATION
  Report Type: Spontaneous
  Country: US (occurrence: None)
  Receive Date: 20250701
  Receipt Date: 20250701
  Transmission Date: 20251021
  Serious: Yes (unspecified)
  Sender: FDA-CTU
  Company Number: None

PATIENT
  Age: 67 Year
  Sex: Female

DRUGS (1)
  1. SUNITINIB MALATE [Suspect]
     Active Substance: SUNITINIB MALATE
     Dosage: OTHER QUANTITY : 37.5MG;?FREQUENCY : DAILY;?

REACTIONS (7)
  - Fatigue [None]
  - Muscular weakness [None]
  - Gingival pain [None]
  - Oral pain [None]
  - Rhinalgia [None]
  - Hepatic enzyme increased [None]
  - Platelet count decreased [None]
